FAERS Safety Report 14340364 (Version 3)
Quarter: 2018Q2

REPORT INFORMATION
  Report Type: Report from Study
  Country: GB (occurrence: GB)
  Receive Date: 20180101
  Receipt Date: 20180416
  Transmission Date: 20180711
  Serious: Yes (Death)
  Sender: FDA-Public Use
  Company Number: GB-ASTRAZENECA-2017SF33051

PATIENT
  Age: 47 Year
  Sex: Male

DRUGS (11)
  1. PREGABALIN. [Suspect]
     Active Substance: PREGABALIN
     Route: 065
  2. PARACETAMOL [Suspect]
     Active Substance: ACETAMINOPHEN
     Route: 065
  3. TEMAZEPAM. [Suspect]
     Active Substance: TEMAZEPAM
     Route: 065
  4. QUETIAPINE. [Suspect]
     Active Substance: QUETIAPINE
     Route: 048
  5. FENTANYL. [Suspect]
     Active Substance: FENTANYL
     Route: 065
  6. METHADONE [Suspect]
     Active Substance: METHADONE HYDROCHLORIDE
     Route: 065
  7. CODEINE [Suspect]
     Active Substance: CODEINE
     Route: 065
  8. OXAZEPAM. [Suspect]
     Active Substance: OXAZEPAM
     Route: 065
  9. NORDAZEPAM [Suspect]
     Active Substance: NORDAZEPAM
     Route: 065
  10. COCAINE [Suspect]
     Active Substance: COCAINE
     Route: 065
  11. DIAZEPAM. [Suspect]
     Active Substance: DIAZEPAM
     Route: 065

REACTIONS (2)
  - Toxicity to various agents [Fatal]
  - Depressed level of consciousness [Fatal]
